FAERS Safety Report 7744116-0 (Version None)
Quarter: 2011Q3

REPORT INFORMATION
  Report Type: 
  Country: None (occurrence: None)
  Receive Date: 20110912
  Receipt Date: 20110902
  Transmission Date: 20111222
  Serious: Yes (Other)
  Sender: FDA-Public Use
  Company Number: US-JNJFOC-20110802252

PATIENT
  Age: 37 Year
  Sex: Female

DRUGS (3)
  1. ZYRTEC [Suspect]
     Indication: ASTHMA
     Route: 048
     Dates: end: 20110719
  2. ZYRTEC [Suspect]
     Indication: SEASONAL ALLERGY
     Route: 048
     Dates: end: 20110719
  3. VENTOLIN HFA [Concomitant]
     Indication: ASTHMA
     Dosage: 2 PUFFS AS NEEDED FOR ASTHMA.
     Route: 055

REACTIONS (6)
  - DYSPNOEA [None]
  - FATIGUE [None]
  - URTICARIA [None]
  - ABDOMINAL PAIN UPPER [None]
  - SOMNOLENCE [None]
  - OFF LABEL USE [None]
